FAERS Safety Report 5306886-0 (Version None)
Quarter: 2007Q2

REPORT INFORMATION
  Report Type: 
  Country: None (occurrence: None)
  Receive Date: 20070425
  Receipt Date: 20070416
  Transmission Date: 20071010
  Serious: Yes (Hospitalization, Other)
  Sender: FDA-Public Use
  Company Number: PHBS2007BR04259

PATIENT
  Age: 76 Year
  Sex: Female
  Weight: 88 kg

DRUGS (10)
  1. FORASEQ [Suspect]
     Indication: ASTHMA
     Dosage: 1 DF, BID  NOT FREQUENTLY
  2. FORASEQ [Suspect]
     Dosage: 1 DF, QD
     Dates: start: 20070201
  3. FORASEQ [Suspect]
     Dosage: 1 DF, BID
  4. DRUG THERAPY NOS [Suspect]
     Route: 042
  5. BEROTEC [Concomitant]
     Indication: ASTHMA
     Dosage: 7 DRP, BID
  6. BEROTEC [Concomitant]
     Dosage: 1 DF, QMO AT EMERGENCY ROOM
  7. OXYGEN THERAPY [Concomitant]
     Indication: ASTHMA
     Dosage: UNK, QMO AT EMERGENCY ROOM
  8. SERUM PHYSIOLOGICAL [Concomitant]
     Indication: ASTHMA
     Dosage: UNK, QMO AT EMERGENCY ROOM
  9. ATROVENT [Concomitant]
     Indication: ASTHMA
     Dosage: 7 DRP, BID
  10. ATROVENT [Concomitant]
     Dosage: UNK, QMO AT EMERGENY ROOM

REACTIONS (14)
  - ANAPHYLACTIC SHOCK [None]
  - COMA [None]
  - DYSPHONIA [None]
  - FAECAL INCONTINENCE [None]
  - FALL [None]
  - FEMUR FRACTURE [None]
  - HIP FRACTURE [None]
  - MUSCLE SPASMS [None]
  - OEDEMA PERIPHERAL [None]
  - PHARYNGOLARYNGEAL DISCOMFORT [None]
  - ROAD TRAFFIC ACCIDENT [None]
  - TREATMENT NONCOMPLIANCE [None]
  - VOMITING [None]
  - WALKING AID USER [None]
